FAERS Safety Report 5018355-6 (Version None)
Quarter: 2006Q2

REPORT INFORMATION
  Report Type: 
  Country: None (occurrence: None)
  Receive Date: 20060530
  Receipt Date: 20060519
  Transmission Date: 20061013
  Serious: Yes (Other)
  Sender: FDA-Public Use
  Company Number: 2006049822

PATIENT
  Age: 74 Year
  Sex: Female
  Weight: 66 kg

DRUGS (9)
  1. FRAGMIN [Suspect]
     Indication: ILL-DEFINED DISORDER
     Dosage: 5000 I.U., INTRAVENOUS
     Route: 042
  2. AMLODIPINE [Concomitant]
  3. NEURONTIN [Concomitant]
  4. IRBESARTAN [Concomitant]
  5. ASPEGIC 1000 [Concomitant]
  6. CORVASAL (MOLSIDOMINE) [Concomitant]
  7. OMEPRAZOLE [Concomitant]
  8. OROCAL (CALCIUM CARBONATE) [Concomitant]
  9. RENAGEL [Concomitant]

REACTIONS (3)
  - HAEMODIALYSIS [None]
  - PROCEDURAL COMPLICATION [None]
  - THROMBOSIS IN DEVICE [None]
